FAERS Safety Report 5394230-2 (Version None)
Quarter: 2007Q3

REPORT INFORMATION
  Report Type: 
  Country: None (occurrence: None)
  Receive Date: 20070723
  Receipt Date: 20070504
  Transmission Date: 20080115
  Serious: No
  Sender: FDA-Public Use
  Company Number: A0650276A

PATIENT
  Sex: Female
  Weight: 102.3 kg

DRUGS (3)
  1. AVANDIA [Suspect]
     Route: 048
  2. BYETTA [Suspect]
     Dosage: 10MCG TWICE PER DAY
     Route: 030
     Dates: start: 20060901
  3. DIOVAN [Concomitant]

REACTIONS (1)
  - OEDEMA PERIPHERAL [None]
